FAERS Safety Report 25286248 (Version 2)
Quarter: 2025Q2

REPORT INFORMATION
  Report Type: Spontaneous
  Country: AU (occurrence: AU)
  Receive Date: 20250509
  Receipt Date: 20250513
  Transmission Date: 20250717
  Serious: Yes (Hospitalization, Other)
  Sender: Kenvue
  Company Number: None

PATIENT

DRUGS (2)
  1. ACETAMINOPHEN [Suspect]
     Active Substance: ACETAMINOPHEN
     Indication: Pyrexia
     Route: 065
     Dates: start: 202401
  2. IBUPROFEN [Suspect]
     Active Substance: IBUPROFEN
     Indication: Pyrexia
     Route: 065
     Dates: start: 202401

REACTIONS (9)
  - Meningococcal bacteraemia [Recovered/Resolved]
  - Gait disturbance [Recovered/Resolved]
  - Lethargy [Recovered/Resolved]
  - Abdominal pain [Recovered/Resolved]
  - Body temperature increased [Recovered/Resolved]
  - Skin discolouration [Recovered/Resolved]
  - Condition aggravated [Recovered/Resolved]
  - Vomiting [Recovered/Resolved]
  - Drug ineffective [Not Recovered/Not Resolved]

NARRATIVE: CASE EVENT DATE: 20240101
